FAERS Safety Report 9006046 (Version 1)
Quarter: 2013Q1

REPORT INFORMATION
  Report Type: Spontaneous
  Country: CA (occurrence: CA)
  Receive Date: 20130109
  Receipt Date: 20130109
  Transmission Date: 20140127
  Serious: Yes (Hospitalization)
  Sender: FDA-Public Use
  Company Number: PHHY2013CA001481

PATIENT
  Age: 81 Year
  Sex: Female
  Weight: 72 kg

DRUGS (4)
  1. DOXORUBICIN [Suspect]
     Indication: B-CELL LYMPHOMA
     Dosage: 85 MG, EVERY THREE WEEKS
     Route: 042
     Dates: start: 20121031
  2. VINCRISTINE SULFATE [Suspect]
     Indication: B-CELL LYMPHOMA
     Dosage: 2 MG, EVERY THREE WEEKS
     Route: 040
     Dates: start: 20121031
  3. PREDNISONE [Suspect]
     Indication: B-CELL LYMPHOMA
     Dosage: 100 MG, EVERY THREE WEEKS
     Route: 048
     Dates: start: 20121031
  4. CYCLOPHOSPHAMIDE [Suspect]
     Indication: B-CELL LYMPHOMA
     Dosage: 1275 MG, FOR EVERY THREE WEEKS
     Route: 042
     Dates: start: 20121031

REACTIONS (1)
  - Febrile neutropenia [Recovered/Resolved]
